FAERS Safety Report 21051314 (Version 2)
Quarter: 2022Q3

REPORT INFORMATION
  Report Type: Spontaneous
  Country: JP (occurrence: JP)
  Receive Date: 20220707
  Receipt Date: 20220726
  Transmission Date: 20221026
  Serious: Yes (Hospitalization, Other)
  Sender: FDA-Public Use
  Company Number: JP-TAIHO-AB220536_P_1

PATIENT
  Age: 75 Year
  Sex: Female
  Weight: 44.5 kg

DRUGS (10)
  1. ABRAXANE [Suspect]
     Active Substance: PACLITAXEL
     Indication: Pancreatic carcinoma metastatic
     Dosage: ON DAYS 1, 8, AND 15 OF EACH 28-DAY CYCLE, WITH SUSPENSION
     Route: 041
     Dates: start: 20220517, end: 20220615
  2. ABRAXANE [Suspect]
     Active Substance: PACLITAXEL
     Indication: Pancreatic carcinoma
     Dosage: AT A DOSE REDUCED BY 1 LEVEL
     Route: 041
     Dates: start: 20220707, end: 20220707
  3. ABRAXANE [Suspect]
     Active Substance: PACLITAXEL
     Indication: Pancreatic carcinoma metastatic
  4. GEMCITABINE HYDROCHLORIDE [Suspect]
     Active Substance: GEMCITABINE HYDROCHLORIDE
     Indication: Pancreatic carcinoma metastatic
     Dosage: ON DAYS 1, 8, AND 15 OF EACH 28-DAY CYCLE, WITH SUSPENSION
     Route: 041
     Dates: start: 20220517, end: 20220615
  5. GEMCITABINE HYDROCHLORIDE [Suspect]
     Active Substance: GEMCITABINE HYDROCHLORIDE
     Indication: Pancreatic carcinoma metastatic
     Dosage: AT A DOSE REDUCED BY 1 LEVEL, ON DAYS 1, 8, AND 15 OF EACH 28-DAY CYCLE, 3 DOSING DAYS
     Route: 041
     Dates: start: 20220517, end: 20220615
  6. GEMCITABINE HYDROCHLORIDE [Suspect]
     Active Substance: GEMCITABINE HYDROCHLORIDE
     Dosage: AT A DOSE REDUCED BY 1 LEVEL
     Route: 041
     Dates: start: 20220707, end: 20220707
  7. AMPICILLIN SODIUM\SULBACTAM SODIUM [Concomitant]
     Active Substance: AMPICILLIN SODIUM\SULBACTAM SODIUM
     Indication: Cholangitis
     Route: 041
     Dates: start: 20220510, end: 20220517
  8. LEVOFLOXACIN [Concomitant]
     Active Substance: LEVOFLOXACIN
     Dosage: DETAILS NOT REPORTED
     Route: 048
     Dates: start: 20220617
  9. HEPARIN SODIUM [Concomitant]
     Active Substance: HEPARIN SODIUM
     Indication: Portal vein thrombosis
     Route: 042
     Dates: start: 20220620, end: 20220621
  10. EDOXABAN TOSYLATE [Concomitant]
     Active Substance: EDOXABAN TOSYLATE
     Indication: Portal vein thrombosis
     Route: 048
     Dates: start: 20220621

REACTIONS (3)
  - Portal vein thrombosis [Not Recovered/Not Resolved]
  - Cholangitis [Recovering/Resolving]
  - Anaemia [Unknown]

NARRATIVE: CASE EVENT DATE: 20220531
